FAERS Safety Report 17021203 (Version 2)
Quarter: 2019Q4

REPORT INFORMATION
  Report Type: Spontaneous
  Country: FR (occurrence: FR)
  Receive Date: 20191112
  Receipt Date: 20191120
  Transmission Date: 20200122
  Serious: Yes (Hospitalization, Other)
  Sender: FDA-Public Use
  Company Number: FR-MYLANLABS-2019M1106905

PATIENT
  Age: 60 Year
  Sex: Male
  Weight: 93.4 kg

DRUGS (6)
  1. METRONIDAZOLE. [Suspect]
     Active Substance: METRONIDAZOLE
     Indication: TOOTH INFECTION
     Dosage: 3 DOSAGE FORM, QD
     Route: 048
     Dates: start: 20160829, end: 20160907
  2. FLANID [Suspect]
     Active Substance: TIAPROFENIC ACID
     Indication: TOOTH INFECTION
     Dosage: UNK
     Route: 048
     Dates: start: 20160908, end: 20160914
  3. AUGMENTIN [Suspect]
     Active Substance: AMOXICILLIN\CLAVULANATE POTASSIUM
     Indication: TOOTH INFECTION
     Dosage: UNK
     Route: 048
     Dates: start: 20160908, end: 20160914
  4. PREDNISOLONE. [Suspect]
     Active Substance: PREDNISOLONE
     Indication: TOOTH INFECTION
     Dosage: 20 MG, TID
     Route: 048
     Dates: start: 20160829, end: 20160907
  5. SPIRAMYCIN [Suspect]
     Active Substance: SPIRAMYCIN
     Indication: TOOTH INFECTION
     Dosage: 3 MILLION IU, TID
     Route: 048
     Dates: start: 20160829, end: 20160907
  6. DAFALGAN [Concomitant]
     Active Substance: ACETAMINOPHEN
     Indication: PRODUCT USED FOR UNKNOWN INDICATION
     Dosage: UNK
     Dates: start: 20160829, end: 20160923

REACTIONS (1)
  - Pancytopenia [Not Recovered/Not Resolved]

NARRATIVE: CASE EVENT DATE: 20160914
